FAERS Safety Report 6576548-0 (Version None)
Quarter: 2010Q1

REPORT INFORMATION
  Report Type: 
  Country: None (occurrence: None)
  Receive Date: 20100210
  Receipt Date: 20100201
  Transmission Date: 20100710
  Serious: Yes (Other)
  Sender: FDA-Public Use
  Company Number: US-BAYER-201012911NA

PATIENT
  Age: 24 Year
  Sex: Female

DRUGS (1)
  1. MIRENA [Suspect]
     Indication: INTRA-UTERINE CONTRACEPTIVE DEVICE
     Dosage: FREQUENCY: CONTINUOUS
     Route: 015
     Dates: start: 20060401

REACTIONS (6)
  - ABORTION SPONTANEOUS [None]
  - AMENORRHOEA [None]
  - MUSCLE SPASMS [None]
  - PREGNANCY TEST NEGATIVE [None]
  - PREGNANCY TEST POSITIVE [None]
  - VAGINAL HAEMORRHAGE [None]
